FAERS Safety Report 5458627-4 (Version None)
Quarter: 2007Q3

REPORT INFORMATION
  Report Type: 
  Country: None (occurrence: None)
  Receive Date: 20070919
  Receipt Date: 20070409
  Transmission Date: 20080115
  Serious: No
  Sender: FDA-Public Use
  Company Number: US-ASTRAZENECA-2007UW06931

PATIENT
  Age: 56 Year
  Sex: Female
  Weight: 63.5 kg

DRUGS (5)
  1. SEROQUEL [Suspect]
     Indication: SLEEP DISORDER
     Route: 048
     Dates: start: 20070301
  2. EFFEXOR XR [Concomitant]
     Dates: start: 20061201
  3. LORAZEPAM [Concomitant]
  4. VYTORIN [Concomitant]
  5. ASPIRIN [Concomitant]

REACTIONS (6)
  - ABNORMAL DREAMS [None]
  - ANOREXIA [None]
  - ANXIETY [None]
  - LIBIDO DECREASED [None]
  - NIGHT SWEATS [None]
  - SOMNOLENCE [None]
